FAERS Safety Report 10186046 (Version 1)
Quarter: 2014Q2

REPORT INFORMATION
  Report Type: Spontaneous
  Country: US (occurrence: None)
  Receive Date: 20140520
  Receipt Date: 20140520
  Transmission Date: 20141212
  Serious: Yes (Life-Threatening)
  Sender: FDA-Public Use
  Company Number: None

PATIENT
  Age: 55 Year
  Sex: Female
  Weight: 156 kg

DRUGS (1)
  1. FOSPHENYTOIN [Suspect]
     Indication: CONVULSION
     Dosage: 3120 MG, ONE-TIME, IVPB?
     Dates: start: 20140505

REACTIONS (3)
  - Hypotension [None]
  - Bradycardia [None]
  - Atrioventricular block first degree [None]
